FAERS Safety Report 16291814 (Version 1)
Quarter: 2019Q2

REPORT INFORMATION
  Report Type: Spontaneous
  Country: US (occurrence: US)
  Receive Date: 20190509
  Receipt Date: 20190509
  Transmission Date: 20190711
  Serious: Yes (Other)
  Sender: FDA-Public Use
  Company Number: US-BAYER-2019-087425

PATIENT
  Age: 27 Year
  Sex: Female

DRUGS (3)
  1. MIRENA [Suspect]
     Active Substance: LEVONORGESTREL
     Indication: CONTRACEPTION
     Dosage: 20 MCG/24HR, CONT
     Route: 015
  2. MIRENA [Suspect]
     Active Substance: LEVONORGESTREL
     Indication: CONTRACEPTION
     Dosage: 20 MCG/24HR, CONT
     Route: 015
     Dates: start: 20140520
  3. MIRENA [Suspect]
     Active Substance: LEVONORGESTREL
     Indication: CONTRACEPTION

REACTIONS (11)
  - Pelvic pain [None]
  - Vaginal discharge [None]
  - Anxiety [None]
  - Cyst [None]
  - Genital haemorrhage [None]
  - Device issue [None]
  - Amenorrhoea [None]
  - Malaise [None]
  - Vaginal haemorrhage [None]
  - Ectopic pregnancy with contraceptive device [None]
  - Fear [None]

NARRATIVE: CASE EVENT DATE: 2018
